FAERS Safety Report 10200840 (Version 3)
Quarter: 2014Q3

REPORT INFORMATION
  Report Type: Spontaneous
  Country: IT (occurrence: IT)
  Receive Date: 20140528
  Receipt Date: 20140806
  Transmission Date: 20150326
  Serious: Yes (Life-Threatening)
  Sender: FDA-Public Use
  Company Number: IT-ELI_LILLY_AND_COMPANY-IT201405008315

PATIENT
  Sex: Male

DRUGS (9)
  1. NEBIVOLOL [Concomitant]
     Active Substance: NEBIVOLOL
     Dosage: 2.5 MG, UNKNOWN
     Route: 048
     Dates: start: 20140519
  2. CARDIOASPIRIN [Suspect]
     Active Substance: ASPIRIN
     Indication: MYOCARDIAL INFARCTION
     Dosage: 300 MG, QD
     Route: 048
     Dates: start: 20140519, end: 20140520
  3. EFIENT [Suspect]
     Active Substance: PRASUGREL HYDROCHLORIDE
     Dosage: 10 MG, UNKNOWN
     Route: 048
     Dates: end: 20140520
  4. EFIENT [Suspect]
     Active Substance: PRASUGREL HYDROCHLORIDE
     Indication: MYOCARDIAL INFARCTION
     Dosage: 60 MG, UNKNOWN
     Route: 048
     Dates: start: 20140519
  5. HEPARIN SODIUM. [Suspect]
     Active Substance: HEPARIN SODIUM
     Indication: MYOCARDIAL INFARCTION
     Dosage: 5500 IU, QD
     Route: 058
     Dates: start: 20140519, end: 20140520
  6. TIROFIBAN [Suspect]
     Active Substance: TIROFIBAN
     Indication: MYOCARDIAL INFARCTION
     Dosage: 25 ?G/KG, QD
     Route: 042
     Dates: start: 20140519, end: 20140520
  7. PANTOPRAZOLE SODIUM [Concomitant]
     Active Substance: PANTOPRAZOLE SODIUM
     Dosage: 40 MG, UNKNOWN
     Route: 048
     Dates: start: 20140519
  8. ATORVASTATIN [Concomitant]
     Active Substance: ATORVASTATIN
     Indication: MYOCARDIAL INFARCTION
     Dosage: 80 MG, UNKNOWN
     Route: 048
  9. TIROFIBAN [Suspect]
     Active Substance: TIROFIBAN
     Dosage: 0.15 ?G/KG, QD
     Route: 042
     Dates: start: 20140519, end: 20140520

REACTIONS (2)
  - Brain oedema [Recovering/Resolving]
  - Cerebellar haemorrhage [Recovering/Resolving]
